FAERS Safety Report 9621221 (Version 1)
Quarter: 2013Q4

REPORT INFORMATION
  Report Type: Report from Study
  Country: AR (occurrence: AR)
  Receive Date: 20131015
  Receipt Date: 20131015
  Transmission Date: 20140711
  Serious: Yes (Hospitalization)
  Sender: FDA-Public Use
  Company Number: PHHY2013AR115039

PATIENT
  Sex: Female

DRUGS (2)
  1. DIOVAN [Suspect]
     Indication: HYPERTENSION
     Dosage: 1 DF, DAILY (80 MG VALS)
     Route: 048
     Dates: start: 201207, end: 20120804
  2. IRON [Concomitant]

REACTIONS (2)
  - Pneumonia [Recovering/Resolving]
  - Immune system disorder [Unknown]
